FAERS Safety Report 10234094 (Version 7)
Quarter: 2018Q2

REPORT INFORMATION
  Report Type: Spontaneous
  Country: IE (occurrence: IE)
  Receive Date: 20140612
  Receipt Date: 20180501
  Transmission Date: 20180711
  Serious: Yes (Disabling, Congenital Anomaly, Other)
  Sender: FDA-Public Use
  Company Number: IE-ABBVIE-14P-229-1246599-00

PATIENT
  Age: 0 Day
  Sex: Male

DRUGS (3)
  1. EPILIM [Suspect]
     Active Substance: VALPROATE SODIUM
     Indication: MATERNAL EXPOSURE TIMING UNSPECIFIED
     Route: 064
  2. EPILIM [Suspect]
     Active Substance: VALPROATE SODIUM
     Indication: MATERNAL EXPOSURE TIMING UNSPECIFIED
     Route: 064
  3. EPILIM [Suspect]
     Active Substance: VALPROATE SODIUM
     Dosage: EXTENDED RELEASE
     Route: 064

REACTIONS (38)
  - Intestinal malrotation [Not Recovered/Not Resolved]
  - Failure to thrive [Unknown]
  - Foot deformity [Not Recovered/Not Resolved]
  - Low set ears [Not Recovered/Not Resolved]
  - Impaired quality of life [Unknown]
  - Sight disability [Not Recovered/Not Resolved]
  - Decreased vibratory sense [Not Recovered/Not Resolved]
  - Tendon disorder [Not Recovered/Not Resolved]
  - Muscular weakness [Unknown]
  - Balance disorder [Unknown]
  - Seizure [Unknown]
  - Tooth disorder [Not Recovered/Not Resolved]
  - Dyspraxia [Not Recovered/Not Resolved]
  - Muscle spasms [Unknown]
  - Exercise tolerance decreased [Unknown]
  - Developmental delay [Unknown]
  - Foetal exposure during pregnancy [Unknown]
  - Memory impairment [Not Recovered/Not Resolved]
  - Cognitive disorder [Unknown]
  - Oral discharge [Not Recovered/Not Resolved]
  - Brain neoplasm [Not Recovered/Not Resolved]
  - Epilepsy [Unknown]
  - Hypotonia [Unknown]
  - Foetal anticonvulsant syndrome [Not Recovered/Not Resolved]
  - Stevens-Johnson syndrome [Unknown]
  - Hypertrichosis [Not Recovered/Not Resolved]
  - Impulsive behaviour [Unknown]
  - Limb discomfort [Unknown]
  - Congenital anomaly [Unknown]
  - Autism spectrum disorder [Not Recovered/Not Resolved]
  - Dysmorphism [Not Recovered/Not Resolved]
  - Learning disorder [Not Recovered/Not Resolved]
  - Disinhibition [Not Recovered/Not Resolved]
  - Limb discomfort [Unknown]
  - Dysmorphism [Unknown]
  - Cerebrovascular accident [Unknown]
  - Migraine [Unknown]
  - Autism spectrum disorder [Not Recovered/Not Resolved]

NARRATIVE: CASE EVENT DATE: 19990712
